FAERS Safety Report 14016431 (Version 1)
Quarter: 2017Q3

REPORT INFORMATION
  Report Type: Spontaneous
  Country: US (occurrence: US)
  Receive Date: 20170927
  Receipt Date: 20170927
  Transmission Date: 20171128
  Serious: No
  Sender: FDA-Public Use
  Company Number: US-SA-2017SA086571

PATIENT
  Sex: Female

DRUGS (1)
  1. LEMTRADA [Suspect]
     Active Substance: ALEMTUZUMAB
     Route: 041

REACTIONS (6)
  - Gastrooesophageal reflux disease [Unknown]
  - Tremor [Unknown]
  - Irritability [Unknown]
  - Pain in extremity [Unknown]
  - Vision blurred [Unknown]
  - Fatigue [Unknown]
